FAERS Safety Report 11202964 (Version 1)
Quarter: 2015Q2

REPORT INFORMATION
  Report Type: Spontaneous
  Country: US (occurrence: None)
  Receive Date: 20150618
  Receipt Date: 20150618
  Transmission Date: 20150821
  Serious: Yes (Life-Threatening, Hospitalization)
  Sender: FDA-Public Use
  Company Number: None

PATIENT
  Age: 77 Year
  Sex: Male
  Weight: 69 kg

DRUGS (2)
  1. WARFARIN [Suspect]
     Active Substance: WARFARIN
     Indication: MITRAL VALVE REPLACEMENT
     Route: 048
     Dates: start: 20110301
  2. DALTEPARIN [Suspect]
     Active Substance: DALTEPARIN
     Indication: SURGERY
     Dosage: 7500 UNITS BID SQ
     Route: 058
     Dates: start: 20120727, end: 20120801

REACTIONS (11)
  - Confusional state [None]
  - Ischaemic stroke [None]
  - Gastric haemorrhage [None]
  - Abdominal wall haematoma [None]
  - Contusion [None]
  - VIIth nerve paralysis [None]
  - Haemorrhage [None]
  - Electrocardiogram ST segment depression [None]
  - Transient ischaemic attack [None]
  - Hemiplegia [None]
  - Blood potassium increased [None]

NARRATIVE: CASE EVENT DATE: 20120801
